FAERS Safety Report 8833314 (Version 2)
Quarter: 2012Q4

REPORT INFORMATION
  Report Type: 
  Country: US (occurrence: US)
  Receive Date: 20121010
  Receipt Date: 20121212
  Transmission Date: 20130627
  Serious: No
  Sender: FDA-Public Use
  Company Number: US-VERTEX PHARMACEUTICAL INC.-2012-022448

PATIENT
  Age: 70 Year
  Sex: Male

DRUGS (5)
  1. VX-950 (TELAPREVIR) [Suspect]
     Indication: HEPATITIS C
     Dosage: UNK
     Route: 048
     Dates: start: 20120809, end: 20121007
  2. RIBAVIRIN [Concomitant]
     Indication: HEPATITIS C
     Dosage: UNK
     Dates: start: 20120809, end: 20121007
  3. RIBAVIRIN [Concomitant]
     Dosage: 400 mg, qd
     Dates: start: 201209
  4. PEGASYS [Concomitant]
     Indication: HEPATITIS C
     Dosage: 90 ?g, UNK
     Dates: start: 20120809, end: 20121007
  5. PEGASYS [Concomitant]
     Dosage: 135 ?g, UNK
     Dates: start: 201209

REACTIONS (3)
  - Fatigue [Not Recovered/Not Resolved]
  - Haemoglobin decreased [Not Recovered/Not Resolved]
  - Drug ineffective [Not Recovered/Not Resolved]
